FAERS Safety Report 19027411 (Version 6)
Quarter: 2021Q4

REPORT INFORMATION
  Report Type: Report from Study
  Country: AU (occurrence: AU)
  Receive Date: 20210318
  Receipt Date: 20211011
  Transmission Date: 20220303
  Serious: Yes (Hospitalization)
  Sender: FDA-Public Use
  Company Number: NVSC2021AU056309

PATIENT
  Age: 67 Year
  Sex: Female
  Weight: 92.4 kg

DRUGS (31)
  1. TISAGENLECLEUCEL [Suspect]
     Active Substance: TISAGENLECLEUCEL
     Indication: Non-Hodgkin^s lymphoma
     Dosage: 2.14_10E8 CELLS
     Route: 042
     Dates: start: 20210303
  2. GEMCITABINE [Suspect]
     Active Substance: GEMCITABINE
     Indication: Non-Hodgkin^s lymphoma
     Dosage: 2014 MG, ONCE/SINGLE
     Route: 042
     Dates: start: 20210204
  3. RITUXIMAB [Suspect]
     Active Substance: RITUXIMAB
     Indication: Non-Hodgkin^s lymphoma
     Dosage: 750 MG, ONCE/SINGLE
     Route: 042
     Dates: start: 20210204
  4. OXALIPLATIN [Suspect]
     Active Substance: OXALIPLATIN
     Indication: Non-Hodgkin^s lymphoma
     Dosage: 200 MG, ONCE/SINGLE
     Route: 042
     Dates: start: 20210204
  5. CALCITRIOL [Concomitant]
     Active Substance: CALCITRIOL
     Indication: Hyperparathyroidism primary
     Dosage: UNK
     Route: 065
     Dates: start: 20080101
  6. CALCIUM CARBONATE [Concomitant]
     Active Substance: CALCIUM CARBONATE
     Indication: Hyperparathyroidism primary
     Dosage: UNK
     Route: 065
     Dates: start: 20210208, end: 20210222
  7. CALCIUM CARBONATE [Concomitant]
     Active Substance: CALCIUM CARBONATE
     Dosage: UNK
     Route: 065
     Dates: start: 20210222, end: 20210528
  8. METOCLOPRAMIDE [Concomitant]
     Active Substance: METOCLOPRAMIDE
     Indication: Nausea
     Dosage: UNK
     Route: 065
     Dates: start: 20210226, end: 20210528
  9. ACETAMINOPHEN [Concomitant]
     Active Substance: ACETAMINOPHEN
     Indication: Headache
     Dosage: UNK
     Route: 065
     Dates: start: 20210225, end: 20210226
  10. ACETAMINOPHEN [Concomitant]
     Active Substance: ACETAMINOPHEN
     Indication: Allergy prophylaxis
     Dosage: UNK
     Route: 065
     Dates: start: 20210303, end: 20210303
  11. ACETAMINOPHEN [Concomitant]
     Active Substance: ACETAMINOPHEN
     Indication: Arthritis
     Dosage: UNK
     Route: 065
     Dates: start: 20210305, end: 20210307
  12. ACETAMINOPHEN [Concomitant]
     Active Substance: ACETAMINOPHEN
     Dosage: UNK
     Route: 065
     Dates: start: 20210307, end: 20210407
  13. KEFLEX [Concomitant]
     Active Substance: CEPHALEXIN
     Indication: Skin infection
     Dosage: UNK
     Route: 065
     Dates: start: 20210303, end: 20210308
  14. PALONOSETRON. [Concomitant]
     Active Substance: PALONOSETRON HYDROCHLORIDE
     Indication: Chemotherapy side effect prophylaxis
     Dosage: UNK
     Route: 065
     Dates: start: 20210224, end: 20210224
  15. VALACYCLOVIR HYDROCHLORIDE [Concomitant]
     Active Substance: VALACYCLOVIR HYDROCHLORIDE
     Indication: Antiviral prophylaxis
     Dosage: UNK
     Route: 065
     Dates: start: 20210203
  16. LORATADINE [Concomitant]
     Active Substance: LORATADINE
     Indication: Allergy prophylaxis
     Dosage: UNK
     Route: 065
     Dates: start: 20210303, end: 20210303
  17. SODIUM CHLORIDE [Concomitant]
     Active Substance: SODIUM CHLORIDE
     Indication: Product used for unknown indication
     Dosage: UNK
     Route: 065
     Dates: start: 20210303, end: 20210303
  18. ENOXAPARIN [Concomitant]
     Active Substance: ENOXAPARIN
     Indication: Embolism
     Dosage: UNK
     Route: 065
     Dates: start: 20210304, end: 20210312
  19. FLUCONAZOLE [Concomitant]
     Active Substance: FLUCONAZOLE
     Indication: Antifungal prophylaxis
     Dosage: UNK
     Route: 065
     Dates: start: 20210203, end: 20210428
  20. CYCLOPHOSPHAMIDE [Concomitant]
     Active Substance: CYCLOPHOSPHAMIDE
     Indication: Chemotherapy
     Dosage: 500 MG, ONCE/SINGLE
     Route: 065
     Dates: start: 20210224, end: 20210224
  21. CYCLOPHOSPHAMIDE [Concomitant]
     Active Substance: CYCLOPHOSPHAMIDE
     Dosage: 500 MG, ONCE/SINGLE
     Route: 065
     Dates: start: 20210225, end: 20210225
  22. CYCLOPHOSPHAMIDE [Concomitant]
     Active Substance: CYCLOPHOSPHAMIDE
     Dosage: 500 MG, ONCE/SINGLE
     Route: 065
     Dates: start: 20210226, end: 20210226
  23. FLUDARABINE [Concomitant]
     Active Substance: FLUDARABINE PHOSPHATE
     Indication: Chemotherapy
     Dosage: 50 MG, ONCE/SINGLE
     Route: 065
     Dates: start: 20210224, end: 20210224
  24. FLUDARABINE [Concomitant]
     Active Substance: FLUDARABINE PHOSPHATE
     Dosage: 50 MG, ONCE/SINGLE
     Route: 065
     Dates: start: 20210225, end: 20210225
  25. FLUDARABINE [Concomitant]
     Active Substance: FLUDARABINE PHOSPHATE
     Dosage: 50 MG, ONCE/SINGLE
     Route: 065
     Dates: start: 20210226, end: 20210226
  26. VITAMIN D3 [Concomitant]
     Active Substance: CHOLECALCIFEROL
     Indication: General physical condition
     Dosage: UNK
     Route: 065
     Dates: start: 20080101
  27. METHYL SALICYLATE\PEPPERMINT OIL\SODIUM BICARBONATE\SODIUM CHLORIDE [Concomitant]
     Active Substance: METHYL SALICYLATE\PEPPERMINT OIL\SODIUM BICARBONATE\SODIUM CHLORIDE
     Indication: Mucosal inflammation
     Dosage: UNK
     Route: 065
     Dates: start: 20210305, end: 20210310
  28. ESOMEPRAZOLE. [Concomitant]
     Active Substance: ESOMEPRAZOLE MAGNESIUM
     Indication: Prophylaxis
     Dosage: UNK
     Route: 065
     Dates: start: 20080101
  29. THYROXINE [Concomitant]
     Active Substance: LEVOTHYROXINE
     Indication: Hyperparathyroidism primary
     Dosage: UNK
     Route: 065
     Dates: start: 19910101
  30. SULFAMETHOXAZOLE\TRIMETHOPRIM [Concomitant]
     Active Substance: SULFAMETHOXAZOLE\TRIMETHOPRIM
     Indication: Antibiotic prophylaxis
     Dosage: UNK
     Route: 065
     Dates: start: 20210203
  31. OXYCODONE HYDROCHLORIDE [Concomitant]
     Active Substance: OXYCODONE HYDROCHLORIDE
     Indication: Arthritis
     Dosage: UNK
     Route: 065
     Dates: start: 20210306, end: 20210410

REACTIONS (1)
  - Arthralgia [Recovered/Resolved with Sequelae]

NARRATIVE: CASE EVENT DATE: 20210307
